FAERS Safety Report 16893388 (Version 1)
Quarter: 2019Q4

REPORT INFORMATION
  Report Type: Report from Study
  Country: CN (occurrence: CN)
  Receive Date: 20191008
  Receipt Date: 20191008
  Transmission Date: 20200122
  Serious: Yes (Death, Other)
  Sender: FDA-Public Use
  Company Number: CN-ROCHE-2420862

PATIENT
  Age: 62 Year
  Sex: Male

DRUGS (8)
  1. CIMETIDINE [Concomitant]
     Active Substance: CIMETIDINE
     Indication: ALLERGY PROPHYLAXIS
     Route: 042
     Dates: start: 20100101
  2. EPIRUBICIN [Suspect]
     Active Substance: EPIRUBICIN
     Indication: B-CELL LYMPHOMA STAGE III
     Dosage: ADMINISTERED ON DAY 1 AND DAY 8
     Route: 042
     Dates: start: 20100713
  3. CYCLOPHOSPHAMIDE. [Suspect]
     Active Substance: CYCLOPHOSPHAMIDE
     Indication: B-CELL LYMPHOMA STAGE III
     Dosage: ADMINISTERED ON DAY 1 AND DAY 8
     Route: 042
     Dates: start: 20100713
  4. VINCRISTINE [Suspect]
     Active Substance: VINCRISTINE
     Indication: B-CELL LYMPHOMA STAGE III
     Dosage: ADMINISTERED ON DAY 1
     Route: 042
     Dates: start: 20100713
  5. DEXAMETHASONE. [Concomitant]
     Active Substance: DEXAMETHASONE
     Indication: ALLERGY PROPHYLAXIS
     Route: 042
     Dates: start: 20100101
  6. DIPHENHYDRAMINE. [Concomitant]
     Active Substance: DIPHENHYDRAMINE
     Indication: ALLERGY PROPHYLAXIS
     Route: 030
     Dates: start: 20100101
  7. RITUXIMAB. [Suspect]
     Active Substance: RITUXIMAB
     Indication: B-CELL LYMPHOMA STAGE III
     Dosage: 375 MG/M2 PER 3 WEEKS
     Route: 041
     Dates: start: 20100807
  8. PREDNISONE. [Suspect]
     Active Substance: PREDNISONE
     Indication: B-CELL LYMPHOMA STAGE III
     Dosage: ADMINISTERED ON DAY 1 AND DAY 8, 60 MG PER DAY
     Route: 048
     Dates: start: 20100713

REACTIONS (2)
  - Interstitial lung disease [Fatal]
  - Bone marrow failure [Unknown]

NARRATIVE: CASE EVENT DATE: 20100920
